FAERS Safety Report 14492122 (Version 5)
Quarter: 2022Q2

REPORT INFORMATION
  Report Type: Spontaneous
  Country: FR (occurrence: FR)
  Receive Date: 20180206
  Receipt Date: 20220418
  Transmission Date: 20220721
  Serious: Yes (Death, Hospitalization, Other)
  Sender: FDA-Public Use
  Company Number: None

PATIENT
  Age: 19 Year
  Sex: Female

DRUGS (16)
  1. TRIMEPRAZINE [Suspect]
     Active Substance: TRIMEPRAZINE
     Indication: Psychiatric decompensation
     Dosage: UNK
     Route: 048
     Dates: start: 20171219, end: 20171227
  2. VALPROATE SODIUM [Suspect]
     Active Substance: VALPROATE SODIUM
     Indication: Psychiatric decompensation
     Dosage: UNK, UNK
     Route: 048
     Dates: start: 20171220, end: 20171223
  3. ZOLPIDEM TARTRATE [Suspect]
     Active Substance: ZOLPIDEM TARTRATE
     Indication: Psychiatric decompensation
     Dosage: UNK
     Route: 048
     Dates: start: 20171219, end: 20171227
  4. FLUPENTIXOL DIHYDROCHLORIDE [Suspect]
     Active Substance: FLUPENTIXOL DIHYDROCHLORIDE
     Indication: Psychiatric decompensation
     Dosage: UNK
     Route: 048
     Dates: start: 20171219, end: 20171227
  5. OLANZAPINE [Suspect]
     Active Substance: OLANZAPINE
     Indication: Psychiatric decompensation
     Dosage: UNK UNK,UNK
     Route: 048
     Dates: start: 20171220, end: 20171227
  6. DIAZEPAM [Suspect]
     Active Substance: DIAZEPAM
     Indication: Psychiatric decompensation
     Dosage: UNK UNK,UNK
     Route: 048
     Dates: start: 20171219, end: 20171227
  7. ARIPIPRAZOLE [Suspect]
     Active Substance: ARIPIPRAZOLE
     Indication: Psychiatric decompensation
     Dosage: 1 DF,UNK
     Route: 030
     Dates: start: 20171206, end: 20171206
  8. IMODIUM [Concomitant]
     Active Substance: LOPERAMIDE HYDROCHLORIDE
     Indication: Product used for unknown indication
     Dosage: 2 MG, QD
     Route: 048
     Dates: start: 20171220, end: 20171220
  9. SPREGAL [Concomitant]
     Active Substance: PIPERONYL BUTOXIDE\S-BIOALLETHRIN
     Dosage: 1 DF,UNK
     Route: 003
     Dates: start: 20171219, end: 20171219
  10. BENZYL BENZOATE [Concomitant]
     Active Substance: BENZYL BENZOATE
     Dosage: 1 DF,UNK
     Route: 003
     Dates: start: 20171219, end: 20171219
  11. LOXAPINE SUCCINATE [Concomitant]
     Active Substance: LOXAPINE SUCCINATE
     Dosage: 4 DF, QD
     Route: 030
     Dates: start: 20171219, end: 20171219
  12. FLUPENTIXOL DECANOATE [Suspect]
     Active Substance: FLUPENTIXOL DECANOATE
     Indication: Psychiatric decompensation
     Dosage: 4 PER CENT, ORAL SOLUTION IN DROPS
     Route: 048
     Dates: start: 20171219, end: 20171227
  13. ZYPREXA [Suspect]
     Active Substance: OLANZAPINE
     Indication: Psychiatric decompensation
     Route: 048
     Dates: start: 20171220, end: 20171227
  14. LOXAPINE [Concomitant]
     Active Substance: LOXAPINE
     Dosage: 4 DF
     Route: 030
     Dates: start: 20171219, end: 20171219
  15. ABILIFY MAINTENA [Suspect]
     Active Substance: ARIPIPRAZOLE
     Indication: Psychiatric decompensation
     Route: 030
     Dates: start: 20171206, end: 20171206
  16. VALIUM [Suspect]
     Active Substance: DIAZEPAM
     Indication: Psychiatric decompensation
     Route: 048
     Dates: start: 20171219, end: 20171227

REACTIONS (1)
  - Cardio-respiratory arrest [Fatal]

NARRATIVE: CASE EVENT DATE: 20171227
